FAERS Safety Report 21649374 (Version 1)
Quarter: 2022Q4

REPORT INFORMATION
  Report Type: Spontaneous
  Country: BE (occurrence: BE)
  Receive Date: 20221128
  Receipt Date: 20221128
  Transmission Date: 20230112
  Serious: Yes (Other)
  Sender: FDA-Public Use
  Company Number: BE-SA-SAC20220526001303

PATIENT
  Age: 28 Year
  Sex: Female

DRUGS (2)
  1. LEMTRADA [Suspect]
     Active Substance: ALEMTUZUMAB
     Indication: Multiple sclerosis
     Dosage: UNK
     Dates: start: 20210726
  2. LEMTRADA [Suspect]
     Active Substance: ALEMTUZUMAB
     Dosage: UNK
     Dates: start: 20200722

REACTIONS (6)
  - Thrombocytopenia [Recovered/Resolved]
  - Autoimmune haemolytic anaemia [Unknown]
  - Influenza like illness [Unknown]
  - Transaminases abnormal [Unknown]
  - Jaundice [Unknown]
  - Blood bilirubin abnormal [Unknown]

NARRATIVE: CASE EVENT DATE: 20220516
